FAERS Safety Report 20422842 (Version 1)
Quarter: 2022Q1

REPORT INFORMATION
  Report Type: Report from Study
  Country: CA (occurrence: CA)
  Receive Date: 20220203
  Receipt Date: 20220203
  Transmission Date: 20220423
  Serious: Yes (Hospitalization, Other)
  Sender: FDA-Public Use
  Company Number: CA-CELGENE-CAN-20220100101

PATIENT
  Age: 84 Year
  Sex: Male

DRUGS (1)
  1. REVLIMID [Suspect]
     Active Substance: LENALIDOMIDE
     Indication: Plasma cell myeloma
     Dosage: 25 MILLIGRAM
     Route: 048

REACTIONS (4)
  - COVID-19 pneumonia [Unknown]
  - Urinary tract infection [Unknown]
  - Dehydration [Unknown]
  - Stomatitis [Unknown]

NARRATIVE: CASE EVENT DATE: 20211213
